FAERS Safety Report 20721013 (Version 2)
Quarter: 2022Q2

REPORT INFORMATION
  Report Type: Spontaneous
  Country: JP (occurrence: JP)
  Receive Date: 20220418
  Receipt Date: 20220428
  Transmission Date: 20220720
  Serious: Yes (Life-Threatening, Hospitalization, Other)
  Sender: FDA-Public Use
  Company Number: JP-TAKEDA-2022TJP009715

PATIENT
  Age: 69 Year
  Sex: Female
  Weight: 61.5 kg

DRUGS (2)
  1. ZEJULA [Suspect]
     Active Substance: NIRAPARIB
     Indication: Ovarian cancer stage III
     Dosage: 200 MILLIGRAM, QD
     Route: 048
     Dates: start: 20211118, end: 20211224
  2. ZEJULA [Suspect]
     Active Substance: NIRAPARIB
     Dosage: 100 MILLIGRAM, QD
     Route: 048
     Dates: start: 20220131, end: 20220224

REACTIONS (5)
  - Thrombocytopenia [Recovered/Resolved]
  - Renal impairment [Recovered/Resolved]
  - Anaemia [Recovered/Resolved]
  - Neutropenia [Recovered/Resolved]
  - White blood cell count decreased [Unknown]

NARRATIVE: CASE EVENT DATE: 20211216
